FAERS Safety Report 10924391 (Version 2)
Quarter: 2015Q2

REPORT INFORMATION
  Report Type: Spontaneous
  Country: US (occurrence: US)
  Receive Date: 20150318
  Receipt Date: 20150524
  Transmission Date: 20150821
  Serious: No
  Sender: FDA-Public Use
  Company Number: US-JNJFOC-20140709034

PATIENT
  Age: 64 Year
  Sex: Female
  Weight: 45.36 kg

DRUGS (3)
  1. NIZORAL A-D [Suspect]
     Active Substance: KETOCONAZOLE
     Indication: PRURITUS
     Dosage: A TEASPOON 2-3 TIMES A WEEK
     Route: 061
     Dates: start: 20140623, end: 20140709
  2. NIZORAL A-D [Suspect]
     Active Substance: KETOCONAZOLE
     Indication: DANDRUFF
     Dosage: A TEASPOON 2-3 TIMES A WEEK
     Route: 061
     Dates: start: 20140623, end: 20140709
  3. SYNTHROID [Concomitant]
     Active Substance: LEVOTHYROXINE SODIUM
     Indication: THYROID DISORDER
     Dosage: FROM YEARS
     Route: 065

REACTIONS (1)
  - Drug ineffective [Unknown]
